FAERS Safety Report 19160129 (Version 1)
Quarter: 2021Q2

REPORT INFORMATION
  Report Type: Spontaneous
  Country: US (occurrence: US)
  Receive Date: 20210420
  Receipt Date: 20210420
  Transmission Date: 20210717
  Serious: Yes (Death, Life-Threatening, Other)
  Sender: FDA-Public Use
  Company Number: US-PFIZER INC-2021410421

PATIENT
  Age: 66 Year
  Sex: Male

DRUGS (6)
  1. GENTAMICIN SULFATE. [Suspect]
     Active Substance: GENTAMICIN SULFATE
     Dosage: 5 MG/L
     Route: 033
     Dates: start: 19810402, end: 19810416
  2. GENTAMICIN SULFATE. [Suspect]
     Active Substance: GENTAMICIN SULFATE
     Dosage: 120 MG
     Route: 042
     Dates: start: 19810527
  3. GENTAMICIN SULFATE. [Suspect]
     Active Substance: GENTAMICIN SULFATE
     Dosage: 80 MG
     Route: 042
     Dates: start: 19810405
  4. CEFAZOLIN [Suspect]
     Active Substance: CEFAZOLIN
     Indication: PERITONITIS
     Dosage: UNK
     Route: 042
     Dates: start: 19810527
  5. CEFAZOLIN [Suspect]
     Active Substance: CEFAZOLIN
     Dosage: UNK
     Route: 033
     Dates: start: 19810527
  6. GENTAMICIN SULFATE. [Suspect]
     Active Substance: GENTAMICIN SULFATE
     Indication: PERITONITIS
     Dosage: 80 MG (IMG/KG BODY WEIGHT)
     Route: 042
     Dates: start: 19810402

REACTIONS (6)
  - Off label use [Unknown]
  - Deafness neurosensory [Not Recovered/Not Resolved]
  - Product use issue [Unknown]
  - Vertigo [Not Recovered/Not Resolved]
  - Vestibular disorder [Not Recovered/Not Resolved]
  - Ototoxicity [Not Recovered/Not Resolved]

NARRATIVE: CASE EVENT DATE: 1981
